FAERS Safety Report 17218445 (Version 1)
Quarter: 2019Q4

REPORT INFORMATION
  Report Type: Spontaneous
  Country: US (occurrence: US)
  Receive Date: 20191231
  Receipt Date: 20191231
  Transmission Date: 20200122
  Serious: No
  Sender: FDA-Public Use
  Company Number: US-LUPIN PHARMACEUTICALS INC.-2019-08546

PATIENT
  Sex: Female

DRUGS (2)
  1. MISOPROSTOL TABLET, 0.2 MG [Suspect]
     Active Substance: MISOPROSTOL
     Indication: ABORTION SPONTANEOUS
     Dosage: 800 MILLIGRAM, TID (EVERY 8 HOURS)
     Route: 065
     Dates: start: 20190903
  2. MISOPROSTOL TABLET, 0.2 MG [Suspect]
     Active Substance: MISOPROSTOL
     Dosage: 800 MILLIGRAM, TID (EVERY 8 HOURS)
     Route: 065
     Dates: start: 20190911

REACTIONS (4)
  - Overdose [Unknown]
  - Exposure during pregnancy [Unknown]
  - Off label use [Unknown]
  - Drug ineffective for unapproved indication [Unknown]
